FAERS Safety Report 6718280-6 (Version None)
Quarter: 2010Q2

REPORT INFORMATION
  Report Type: 
  Country: None (occurrence: None)
  Receive Date: 20100505
  Receipt Date: 20100419
  Transmission Date: 20101027
  Serious: No
  Sender: FDA-Public Use
  Company Number: SPI201000117

PATIENT
  Age: 44 Year
  Sex: Male
  Weight: 80.7 kg

DRUGS (12)
  1. AMITIZA [Suspect]
     Indication: CONSTIPATION
     Dosage: 24 MCG, BID, ORAL ; 8 MCG, BID, ORAL
     Route: 048
     Dates: start: 20100319, end: 20100326
  2. AMITIZA [Suspect]
     Indication: CONSTIPATION
     Dosage: 24 MCG, BID, ORAL ; 8 MCG, BID, ORAL
     Route: 048
     Dates: start: 20100419
  3. WELLBUTRIN [Concomitant]
  4. PROTONIX [Concomitant]
  5. MAXZIDE [Concomitant]
  6. ATENOLOL [Concomitant]
  7. SIMVASTATNI (SIMVASTATIN) [Concomitant]
  8. DESIPRAMINE HCL [Concomitant]
  9. AMIBEN (ZOLPIDEM TARTRATE) [Concomitant]
  10. ULTRAM [Concomitant]
  11. FLURBIPROFEN [Concomitant]
  12. MIRALAX [Concomitant]

REACTIONS (3)
  - ANXIETY [None]
  - CHEST DISCOMFORT [None]
  - DYSPNOEA [None]
